FAERS Safety Report 6942507-9 (Version None)
Quarter: 2010Q3

REPORT INFORMATION
  Report Type: 
  Country: None (occurrence: None)
  Receive Date: 20100826
  Receipt Date: 20100820
  Transmission Date: 20110219
  Serious: Yes (Hospitalization)
  Sender: FDA-Public Use
  Company Number: MX-ELI_LILLY_AND_COMPANY-MX201008006208

PATIENT
  Age: 59 Year
  Sex: Female
  Weight: 72 kg

DRUGS (9)
  1. HUMULIN N [Suspect]
     Indication: TYPE 2 DIABETES MELLITUS
     Dosage: 39 IU, DAILY (1/D)
     Route: 058
  2. HUMULIN R [Concomitant]
     Indication: BLOOD GLUCOSE INCREASED
     Dosage: 4 U, AS NEEDED
  3. ULSEN [Concomitant]
     Indication: VOMITING
     Dosage: 20 MG, 2/D
  4. CIPRO [Concomitant]
     Indication: ANTIBIOTIC PROPHYLAXIS
     Dosage: 500 MG, 2/D
     Dates: end: 20100813
  5. CEFUROXIME [Concomitant]
     Indication: PHARYNGITIS
     Dosage: 500 MG, UNK
     Dates: end: 20100815
  6. MOTILIUM [Concomitant]
     Indication: INFECTION
     Dosage: 2 D/F, DAILY (1/D)
  7. DOLAC [Concomitant]
     Indication: PAIN
     Dosage: 10 MG, AS NEEDED
  8. DIOVAN HCT [Concomitant]
     Indication: BLOOD PRESSURE
     Dosage: 1 D/F, DAILY (1/D)
  9. MODURETIC 5-50 [Concomitant]
     Indication: SWELLING
     Dosage: 0.5 D/F, DAILY (1/D)

REACTIONS (4)
  - BLOOD GLUCOSE INCREASED [None]
  - DEHYDRATION [None]
  - INJECTION SITE HAEMATOMA [None]
  - URINARY TRACT INFECTION [None]
